FAERS Safety Report 25186408 (Version 1)
Quarter: 2025Q2

REPORT INFORMATION
  Report Type: Spontaneous
  Country: RU (occurrence: RU)
  Receive Date: 20250410
  Receipt Date: 20250410
  Transmission Date: 20250716
  Serious: Yes (Other)
  Sender: NOVO NORDISK
  Company Number: None

PATIENT
  Age: 66 Year
  Sex: Female
  Weight: 88 kg

DRUGS (2)
  1. LEVEMIR [Suspect]
     Active Substance: INSULIN DETEMIR
     Indication: Type 2 diabetes mellitus
     Dosage: 26 IU, QD (14 IU AT 08:00, 12 IU AT 20:00)
     Route: 058
     Dates: start: 20250324, end: 20250326
  2. INSULIN HUMAN [Suspect]
     Active Substance: INSULIN HUMAN
     Indication: Type 2 diabetes mellitus
     Dosage: 26 IU, QD (14 IU AT 08:00, 12 IU AT 20:00)
     Route: 058
     Dates: start: 20250305, end: 20250324

REACTIONS (3)
  - Hypoaesthesia oral [Recovered/Resolved]
  - Glossodynia [Recovered/Resolved]
  - Tongue dry [Recovered/Resolved]

NARRATIVE: CASE EVENT DATE: 20250310
